APPROVED DRUG PRODUCT: NITROPRESS
Active Ingredient: SODIUM NITROPRUSSIDE
Strength: 25MG/ML
Dosage Form/Route: INJECTABLE;INJECTION
Application: A071961 | Product #001
Applicant: VALEANT PHARMACEUTICALS NORTH AMERICA
Approved: Aug 1, 1988 | RLD: No | RS: No | Type: DISCN